FAERS Safety Report 7003611-2 (Version None)
Quarter: 2010Q3

REPORT INFORMATION
  Report Type: 
  Country: None (occurrence: None)
  Receive Date: 20100917
  Receipt Date: 20100825
  Transmission Date: 20110219
  Serious: Yes (Other)
  Sender: FDA-Public Use
  Company Number: 20109247

PATIENT
  Age: 44 Year
  Sex: Male
  Weight: 77.1115 kg

DRUGS (9)
  1. LIORESAL [Suspect]
     Indication: MUSCLE SPASTICITY
     Dosage: DAILY, INTRATHECAL
     Route: 037
  2. ARTIFICIAL TEARS [Concomitant]
  3. COLACE [Concomitant]
  4. NEURONTIN [Concomitant]
  5. PREVACID [Concomitant]
  6. MINOCYCLINE HCL [Concomitant]
  7. VIGAMOX OPTH DROP [Concomitant]
  8. DITROPAN [Concomitant]
  9. EFFEXOR [Concomitant]

REACTIONS (6)
  - ANTIBIOTIC RESISTANT STAPHYLOCOCCUS TEST POSITIVE [None]
  - CHILLS [None]
  - CULTURE WOUND POSITIVE [None]
  - MEDICAL DEVICE COMPLICATION [None]
  - PURULENT DISCHARGE [None]
  - PYREXIA [None]
